FAERS Safety Report 10489642 (Version 1)
Quarter: 2014Q3

REPORT INFORMATION
  Report Type: Spontaneous
  Country: US (occurrence: None)
  Receive Date: 20140908
  Receipt Date: 20140908
  Transmission Date: 20150326
  Serious: Yes (Other)
  Sender: FDA-Public Use
  Company Number: 402889

PATIENT
  Age: 66 Year
  Sex: Female
  Weight: 90.5 kg

DRUGS (11)
  1. ADVAIR DISKUS [Concomitant]
     Active Substance: FLUTICASONE PROPIONATE\SALMETEROL XINAFOATE
  2. FUROSEMIDE. [Concomitant]
     Active Substance: FUROSEMIDE
  3. VICTOZA [Suspect]
     Active Substance: LIRAGLUTIDE
     Indication: TYPE 2 DIABETES MELLITUS
     Route: 058
     Dates: start: 20140104
  4. NIFEDICAL [Concomitant]
  5. TUSSIONEX (BROMHEXINE) [Concomitant]
  6. POTASSIUM CHLORIDE. [Concomitant]
     Active Substance: POTASSIUM CHLORIDE
  7. NYSTATIN. [Concomitant]
     Active Substance: NYSTATIN
  8. METFORMIN [Concomitant]
     Active Substance: METFORMIN HYDROCHLORIDE
  9. EFFEXOR (VENLAFAXINE HYDROCHLORIDE) [Concomitant]
  10. TOVIAZ [Concomitant]
     Active Substance: FESOTERODINE FUMARATE
  11. SIMVASTATIN. [Concomitant]
     Active Substance: SIMVASTATIN

REACTIONS (1)
  - Pancreatitis [None]

NARRATIVE: CASE EVENT DATE: 20140226
